FAERS Safety Report 19379707 (Version 2)
Quarter: 2021Q2

REPORT INFORMATION
  Report Type: Report from Study
  Country: ES (occurrence: ES)
  Receive Date: 20210607
  Receipt Date: 20210622
  Transmission Date: 20210717
  Serious: Yes (Hospitalization)
  Sender: FDA-Public Use
  Company Number: ES-ROCHE-2842333

PATIENT
  Age: 48 Year
  Sex: Female
  Weight: 96.6 kg

DRUGS (13)
  1. BLINDED TUCATINIB [Suspect]
     Active Substance: TUCATINIB
     Indication: BREAST CANCER METASTATIC
     Route: 048
     Dates: start: 20210406, end: 20210526
  2. TAXOTERE [Concomitant]
     Active Substance: DOCETAXEL
  3. TRASTUZUMAB EMTANSINE [Suspect]
     Active Substance: ADO-TRASTUZUMAB EMTANSINE
     Indication: BREAST CANCER METASTATIC
     Dosage: DAY 1 OF 21 DAY CYCLE.
     Route: 042
     Dates: start: 20210406, end: 20210520
  4. PARACETAMOL [Concomitant]
     Active Substance: ACETAMINOPHEN
     Dates: start: 20210522
  5. ZOLPIDEM [Concomitant]
     Active Substance: ZOLPIDEM TARTRATE
     Dates: start: 202103
  6. CARBOPLATIN. [Concomitant]
     Active Substance: CARBOPLATIN
  7. CAPECITABINE. [Concomitant]
     Active Substance: CAPECITABINE
     Route: 048
     Dates: start: 20210226, end: 20210312
  8. ONDANSETRON [Concomitant]
     Active Substance: ONDANSETRON
     Dates: start: 20210501, end: 20210516
  9. TRASTUZUMAB. [Concomitant]
     Active Substance: TRASTUZUMAB
     Route: 065
     Dates: start: 20210225
  10. ENANTYUM [Concomitant]
     Active Substance: DEXKETOPROFEN TROMETAMOL
     Dates: start: 20210522
  11. TRASTUZUMAB. [Concomitant]
     Active Substance: TRASTUZUMAB
     Dates: end: 20201216
  12. PERTUZUMAB. [Concomitant]
     Active Substance: PERTUZUMAB
     Dates: end: 20201216
  13. AMERIDE (SPAIN) [Concomitant]

REACTIONS (1)
  - General physical health deterioration [Recovered/Resolved]

NARRATIVE: CASE EVENT DATE: 20210526
